FAERS Safety Report 16167421 (Version 1)
Quarter: 2019Q2

REPORT INFORMATION
  Report Type: Report from Study
  Country: US (occurrence: US)
  Receive Date: 20190408
  Receipt Date: 20190408
  Transmission Date: 20190711
  Serious: Yes (Hospitalization, Other)
  Sender: FDA-Public Use
  Company Number: US-GLAXOSMITHKLINE-US2019GSK059857

PATIENT
  Sex: Male

DRUGS (2)
  1. SUMATRIPTAN SUCCINATE. [Suspect]
     Active Substance: SUMATRIPTAN SUCCINATE
     Dosage: UNK
     Route: 055
  2. SUMATRIPTAN SUCCINATE. [Suspect]
     Active Substance: SUMATRIPTAN SUCCINATE
     Indication: MIGRAINE
     Dosage: UNK
     Route: 058
     Dates: start: 2010

REACTIONS (12)
  - Cerebrovascular accident [Unknown]
  - Aphasia [Unknown]
  - Blindness [Unknown]
  - Medication overuse headache [Unknown]
  - Aura [Unknown]
  - Spinal operation [Unknown]
  - Nuclear magnetic resonance imaging neck [Unknown]
  - Serotonin syndrome [Unknown]
  - Migraine [Unknown]
  - Drug ineffective [Unknown]
  - Hemiplegia [Unknown]
  - Headache [Unknown]
